FAERS Safety Report 13973698 (Version 1)
Quarter: 2017Q3

REPORT INFORMATION
  Report Type: Spontaneous
  Country: US (occurrence: US)
  Receive Date: 20170915
  Receipt Date: 20170915
  Transmission Date: 20171128
  Serious: Yes (Other)
  Sender: FDA-Public Use
  Company Number: US-PFIZER INC-2017367699

PATIENT
  Age: 42 Year
  Sex: Female

DRUGS (13)
  1. TIZANIDINE. [Concomitant]
     Active Substance: TIZANIDINE
     Dosage: 4 MG, UNK
  2. TRAMADOL HCL [Concomitant]
     Active Substance: TRAMADOL HYDROCHLORIDE
     Dosage: 50 MG, UNK
  3. DICLOFENAC POTASSIUM. [Concomitant]
     Active Substance: DICLOFENAC POTASSIUM
     Dosage: 50 MG, UNK
  4. HARVONI [Concomitant]
     Active Substance: LEDIPASVIR\SOFOSBUVIR
     Dosage: 90-400 MG, UNK
  5. PREDNISONE. [Concomitant]
     Active Substance: PREDNISONE
     Dosage: 10 MG, UNK
  6. SULFASALAZINE DELAYED-RELEASE [Concomitant]
     Active Substance: SULFASALAZINE
     Dosage: 500 MG, UNK
  7. DILANTIN [Suspect]
     Active Substance: PHENYTOIN
     Dosage: UNK
     Route: 065
  8. DILANTIN [Interacting]
     Active Substance: PHENYTOIN
     Dosage: UNK
     Route: 065
  9. ACETAMIN [Concomitant]
     Active Substance: ACETAMINOPHEN
     Dosage: 325 MG, UNK
  10. LAMOTRIGINE. [Concomitant]
     Active Substance: LAMOTRIGINE
     Dosage: 25 MG, UNK
  11. METHYLPREDNISOLONE. [Concomitant]
     Active Substance: METHYLPREDNISOLONE
     Dosage: 4 MG, UNK
  12. XIFAXAN [Concomitant]
     Active Substance: RIFAXIMIN
     Dosage: 550 MG, UNK
  13. ENBREL [Interacting]
     Active Substance: ETANERCEPT
     Indication: CHRONIC HEPATITIS C
     Dosage: 50 MG, QWK
     Route: 058
     Dates: start: 20170804

REACTIONS (7)
  - Product use in unapproved indication [Unknown]
  - Contusion [Not Recovered/Not Resolved]
  - Drug interaction [Not Recovered/Not Resolved]
  - Drug level increased [Not Recovered/Not Resolved]
  - Mobility decreased [Not Recovered/Not Resolved]
  - Gait disturbance [Not Recovered/Not Resolved]
  - Fatigue [Not Recovered/Not Resolved]

NARRATIVE: CASE EVENT DATE: 201708
